FAERS Safety Report 19274238 (Version 2)
Quarter: 2021Q2

REPORT INFORMATION
  Report Type: Spontaneous
  Country: US (occurrence: US)
  Receive Date: 20210519
  Receipt Date: 20210622
  Transmission Date: 20210717
  Serious: No
  Sender: FDA-Public Use
  Company Number: US-SA-2021SA164427

PATIENT
  Age: 44 Year
  Sex: Female

DRUGS (2)
  1. DUPIXENT [Suspect]
     Active Substance: DUPILUMAB
     Indication: ECZEMA NUMMULAR
     Dosage: UNK
     Dates: start: 20210413, end: 202105
  2. DUPIXENT [Suspect]
     Active Substance: DUPILUMAB
     Dosage: UNK
     Dates: start: 20210511, end: 20210608

REACTIONS (9)
  - Injection site erythema [Recovering/Resolving]
  - Product use in unapproved indication [Unknown]
  - Pruritus [Unknown]
  - Dry eye [Unknown]
  - Skin exfoliation [Recovering/Resolving]
  - Skin swelling [Unknown]
  - Pruritus [Recovering/Resolving]
  - Skin haemorrhage [Unknown]
  - Eye pruritus [Unknown]

NARRATIVE: CASE EVENT DATE: 20210413
